FAERS Safety Report 24599031 (Version 3)
Quarter: 2024Q4

REPORT INFORMATION
  Report Type: Spontaneous
  Country: US (occurrence: US)
  Receive Date: 20241110
  Receipt Date: 20241226
  Transmission Date: 20250114
  Serious: Yes (Hospitalization)
  Sender: SANOFI AVENTIS
  Company Number: US-SA-2024SA313077

PATIENT
  Age: 16 Year
  Sex: Male

DRUGS (4)
  1. DUPIXENT [Suspect]
     Active Substance: DUPILUMAB
     Indication: Eosinophilic oesophagitis
     Dosage: 300 MG, QOW
     Route: 058
     Dates: start: 202408
  2. PROTONIX [Concomitant]
     Active Substance: PANTOPRAZOLE SODIUM
     Dosage: UNK
  3. BUDESONIDE [Concomitant]
     Active Substance: BUDESONIDE
     Dosage: UNK
  4. RIFAXIMIN [Concomitant]
     Active Substance: RIFAXIMIN

REACTIONS (10)
  - Hospitalisation [Unknown]
  - Illness [Unknown]
  - Gastritis [Unknown]
  - Abdominal distension [Unknown]
  - Decreased appetite [Unknown]
  - Injection site abscess [Recovered/Resolved]
  - Abdominal pain [Unknown]
  - Injection site pain [Unknown]
  - Eosinophilic oesophagitis [Not Recovered/Not Resolved]
  - Drug ineffective [Unknown]

NARRATIVE: CASE EVENT DATE: 20240101
